FAERS Safety Report 21837449 (Version 1)
Quarter: 2023Q1

REPORT INFORMATION
  Report Type: Spontaneous
  Country: US (occurrence: None)
  Receive Date: 20230106
  Receipt Date: 20230106
  Transmission Date: 20230418
  Serious: No
  Sender: FDA-Public Use
  Company Number: None

PATIENT
  Age: 63 Year
  Sex: Female

DRUGS (1)
  1. TREMFYA [Suspect]
     Active Substance: GUSELKUMAB
     Indication: Psoriasis
     Dosage: OTHER FREQUENCY : Q 8WKS;?
     Route: 058
     Dates: start: 20210804

REACTIONS (6)
  - Device malfunction [None]
  - Drug dose omission by device [None]
  - Needle issue [None]
  - Accidental exposure to product [None]
  - Injury [None]
  - Exposure via skin contact [None]

NARRATIVE: CASE EVENT DATE: 20230102
